FAERS Safety Report 14337791 (Version 1)
Quarter: 2017Q4

REPORT INFORMATION
  Report Type: Spontaneous
  Country: US (occurrence: US)
  Receive Date: 20171228
  Receipt Date: 20171228
  Transmission Date: 20180321
  Serious: No
  Sender: FDA-Public Use
  Company Number: None

PATIENT
  Age: 57 Year
  Sex: Female

DRUGS (1)
  1. AVONEX [Suspect]
     Active Substance: INTERFERON BETA-1A
     Indication: MULTIPLE SCLEROSIS
     Route: 030
     Dates: start: 20150101

REACTIONS (5)
  - Delirium [None]
  - Post procedural complication [None]
  - Confusional state [None]
  - Injection site pain [None]
  - Disorientation [None]

NARRATIVE: CASE EVENT DATE: 20171001
